FAERS Safety Report 9544295 (Version 1)
Quarter: 2013Q3

REPORT INFORMATION
  Report Type: Spontaneous
  Country: RS (occurrence: RS)
  Receive Date: 20130923
  Receipt Date: 20130923
  Transmission Date: 20140515
  Serious: Yes (Hospitalization)
  Sender: FDA-Public Use
  Company Number: RS-B.I. PHARMACEUTICALS,INC./RIDGEFIELD-2013-BI-29112RS

PATIENT
  Age: 39 Year
  Sex: Male

DRUGS (5)
  1. DULCOLAX [Suspect]
     Indication: CONSTIPATION
     Dosage: 10 MG
     Route: 048
     Dates: start: 20130724, end: 20130724
  2. 5-ASA [Concomitant]
  3. PROBIOTIC [Concomitant]
  4. ENALAPRIL [Concomitant]
  5. CONTROLOC [Concomitant]

REACTIONS (3)
  - Intestinal obstruction [Recovered/Resolved]
  - Abdominal pain [Recovered/Resolved]
  - Vomiting [Recovered/Resolved]
